FAERS Safety Report 5134013-1 (Version None)
Quarter: 2006Q4

REPORT INFORMATION
  Report Type: 
  Country: None (occurrence: None)
  Receive Date: 20061018
  Receipt Date: 20061005
  Transmission Date: 20070319
  Serious: Yes (Hospitalization)
  Sender: FDA-Public Use
  Company Number: 236238K06USA

PATIENT
  Age: 40 Year
  Sex: Female
  Weight: 42.6 kg

DRUGS (10)
  1. REBIF [Suspect]
     Indication: MULTIPLE SCLEROSIS
     Dosage: 44 MCG, 3 IN 1 WEEKS, SUBCUTANEOUS
     Route: 058
     Dates: start: 20020822, end: 20060830
  2. LEVAQUIN [Concomitant]
  3. CALCITRIOL [Concomitant]
  4. CARVEDILOL [Concomitant]
  5. KEPPRA [Concomitant]
  6. COZAAR [Concomitant]
  7. SODIUM BICARBONATE IN PLASTIC CONTAINER [Concomitant]
  8. WELLBUTRIN XL [Concomitant]
  9. CELEXA [Concomitant]
  10. SYNTHROID [Concomitant]

REACTIONS (8)
  - AGITATION [None]
  - ALANINE AMINOTRANSFERASE INCREASED [None]
  - CARDIAC OUTPUT DECREASED [None]
  - CONFUSIONAL STATE [None]
  - METABOLIC ENCEPHALOPATHY [None]
  - PARANOIA [None]
  - PERITONEAL DIALYSIS [None]
  - PLATELET COUNT DECREASED [None]
